FAERS Safety Report 8428110 (Version 3)
Quarter: 2013Q3

REPORT INFORMATION
  Report Type: Report from Study
  Country: FR (occurrence: FR)
  Receive Date: 20120227
  Receipt Date: 20130723
  Transmission Date: 20140515
  Serious: No
  Sender: FDA-Public Use
  Company Number: FR-ROCHE-1030079

PATIENT
  Age: 54 Year
  Sex: Male
  Weight: 84.7 kg

DRUGS (5)
  1. RIBAVIRIN [Suspect]
     Indication: CHRONIC HEPATITIS C
     Dosage: LAST DOSE PRIOR TO SAE: 30/OCT/2011
     Route: 048
     Dates: start: 20110124
  2. BI 207127 [Suspect]
     Indication: CHRONIC HEPATITIS C
     Dosage: LAST DOSE PRIOR TO SAE: 30/OCT/2011
     Route: 048
     Dates: start: 20110124
  3. BI 201335 [Suspect]
     Indication: CHRONIC HEPATITIS C
     Dosage: LAST DOSE PRIOR TO SAE: 30/OCT/2011
     Route: 048
     Dates: start: 20110124
  4. REFACTO [Concomitant]
     Indication: HAEMOPHILIA
     Dosage: FORM: SOLUTION
     Route: 058
     Dates: start: 2000
  5. APROVEL [Concomitant]
     Indication: HYPERTENSION
     Route: 048
     Dates: start: 20110119

REACTIONS (1)
  - Photosensitivity reaction [Recovered/Resolved]
